FAERS Safety Report 4603217-6 (Version None)
Quarter: 2005Q1

REPORT INFORMATION
  Report Type: 
  Country: None (occurrence: None)
  Receive Date: 20050307
  Receipt Date: 20050222
  Transmission Date: 20050727
  Serious: Yes (Hospitalization)
  Sender: FDA-Public Use
  Company Number: 2005036066

PATIENT
  Age: 85 Year
  Sex: Male

DRUGS (8)
  1. FRAGMIN [Suspect]
     Indication: ILL-DEFINED DISORDER
     Dosage: (5000 I.U.,) SUBCUTANEOUS
     Route: 058
     Dates: start: 20050117, end: 20050118
  2. ACETYLSALICYLIC ACID SRT [Suspect]
     Indication: ILL-DEFINED DISORDER
     Dosage: ORAL
     Route: 048
     Dates: end: 20050117
  3. ERGENYL CHRONO (VALPROATE SODIUM, VALPROIC ACID) [Concomitant]
  4. DIGOXIN [Concomitant]
  5. FUROSEMIDE [Concomitant]
  6. DILTIAZEM HYDROCHLORIDE [Concomitant]
  7. INSULIN ASPART (INSULIN ASPART) [Concomitant]
  8. OXAZEPAM [Concomitant]

REACTIONS (12)
  - ANAEMIA [None]
  - BLOOD PRESSURE DIASTOLIC DECREASED [None]
  - DRUG INTERACTION [None]
  - DUODENAL ULCER [None]
  - DUODENITIS [None]
  - FLATULENCE [None]
  - HEART RATE INCREASED [None]
  - OESOPHAGITIS ULCERATIVE [None]
  - PALLOR [None]
  - PEPTIC ULCER [None]
  - PLATELET COUNT INCREASED [None]
  - SKIN DISCOLOURATION [None]
